FAERS Safety Report 11975923 (Version 3)
Quarter: 2016Q2

REPORT INFORMATION
  Report Type: Spontaneous
  Country: US (occurrence: US)
  Receive Date: 20160129
  Receipt Date: 20160512
  Transmission Date: 20160815
  Serious: Yes (Other)
  Sender: FDA-Public Use
  Company Number: US-ROCHE-1697832

PATIENT
  Sex: Male

DRUGS (3)
  1. XELODA [Suspect]
     Active Substance: CAPECITABINE
     Indication: NEOPLASM MALIGNANT
     Dosage: TWO 150 MG TABLETS ALONG WITH THREE 500 MG TABLETS TWICE DAILY FOR 14 DAYS THEN OFF FOR 7 DAYS.
     Route: 048
     Dates: start: 20151231
  2. XELODA [Suspect]
     Active Substance: CAPECITABINE
     Route: 048
     Dates: start: 20160128
  3. XELODA [Suspect]
     Active Substance: CAPECITABINE
     Route: 048
     Dates: start: 20160128

REACTIONS (7)
  - Nausea [Unknown]
  - Blood potassium decreased [Unknown]
  - Weight increased [Unknown]
  - Muscle spasms [Unknown]
  - Chest pain [Unknown]
  - Dizziness [Unknown]
  - Dehydration [Unknown]
